FAERS Safety Report 14314239 (Version 3)
Quarter: 2018Q1

REPORT INFORMATION
  Report Type: Spontaneous
  Country: JP (occurrence: JP)
  Receive Date: 20171221
  Receipt Date: 20180116
  Transmission Date: 20180509
  Serious: Yes (Other)
  Sender: FDA-Public Use
  Company Number: JP-PURDUE-GBR-2017-0051757

PATIENT
  Age: 54 Year
  Sex: Male

DRUGS (4)
  1. DOPS [Suspect]
     Active Substance: DROXIDOPA
     Indication: HYPOTENSION
     Dosage: UNK
     Route: 048
     Dates: start: 20171207
  2. OXYCONTIN [Suspect]
     Active Substance: OXYCODONE HYDROCHLORIDE
     Indication: PAIN
     Dosage: 10 MG, DAILY
     Route: 048
     Dates: start: 20171207, end: 20171211
  3. BROTIZOLAM [Concomitant]
     Active Substance: BROTIZOLAM
     Route: 048
  4. BENZALIN                           /00036201/ [Suspect]
     Active Substance: NITRAZEPAM
     Indication: PRODUCT USED FOR UNKNOWN INDICATION
     Route: 048

REACTIONS (2)
  - Bradycardia [Recovering/Resolving]
  - Off label use [Recovering/Resolving]

NARRATIVE: CASE EVENT DATE: 20171209
